FAERS Safety Report 5220509-0 (Version None)
Quarter: 2007Q1

REPORT INFORMATION
  Report Type: 
  Country: None (occurrence: None)
  Receive Date: 20070125
  Receipt Date: 20070125
  Transmission Date: 20070707
  Serious: Yes (Hospitalization)
  Sender: FDA-Public Use
  Company Number: None

PATIENT
  Sex: Male
  Weight: 82.5547 kg

DRUGS (3)
  1. HUMALOG [Suspect]
     Indication: DIABETES MELLITUS
     Dosage: 8 UNITS PRIOR TO ADMISSION
  2. LANTUS [Suspect]
     Indication: DIABETES MELLITUS
     Dosage: 37 UNITS PRIOR TO ADMISSION
  3. SYNTHROID [Concomitant]

REACTIONS (1)
  - NO THERAPEUTIC RESPONSE [None]
